FAERS Safety Report 21299515 (Version 1)
Quarter: 2022Q3

REPORT INFORMATION
  Report Type: Spontaneous
  Country: US (occurrence: US)
  Receive Date: 20220906
  Receipt Date: 20220906
  Transmission Date: 20221027
  Serious: No
  Sender: FDA-Public Use
  Company Number: US-Calliditas-2022CAL00298

PATIENT
  Sex: Female

DRUGS (2)
  1. TARPEYO [Suspect]
     Active Substance: BUDESONIDE
     Indication: IgA nephropathy
     Dosage: 16 MG (4 MG CAPSULES) ONCE DAILY
     Route: 048
     Dates: start: 20220729
  2. LISINOPRIL [Concomitant]
     Active Substance: LISINOPRIL
     Dosage: INCREASED FROM 10 MG TO 20 MG

REACTIONS (1)
  - Blood pressure increased [Recovering/Resolving]
